FAERS Safety Report 8579966-4 (Version None)
Quarter: 2012Q3

REPORT INFORMATION
  Report Type: 
  Country: None (occurrence: None)
  Receive Date: 20120808
  Receipt Date: 20120726
  Transmission Date: 20120928
  Serious: No
  Sender: FDA-Public Use
  Company Number: US-ASTRAZENECA-2010SE47010

PATIENT
  Age: 52 Year
  Sex: Female

DRUGS (1)
  1. NEXIUM [Suspect]
     Route: 048

REACTIONS (6)
  - AMNESIA [None]
  - INSOMNIA [None]
  - DRUG DOSE OMISSION [None]
  - DYSPHAGIA [None]
  - BLOOD GLUCOSE DECREASED [None]
  - DYSPEPSIA [None]
